FAERS Safety Report 12689767 (Version 1)
Quarter: 2016Q3

REPORT INFORMATION
  Report Type: Spontaneous
  Country: US (occurrence: None)
  Receive Date: 20160825
  Receipt Date: 20160825
  Transmission Date: 20161109
  Serious: Yes (Other)
  Sender: FDA-Public Use
  Company Number: None

PATIENT
  Age: 34 Year
  Sex: Male
  Weight: 106.6 kg

DRUGS (1)
  1. ANDRODERM [Suspect]
     Active Substance: TESTOSTERONE
     Indication: HYPOGONADISM
     Dates: start: 20140110, end: 20140313

REACTIONS (2)
  - Skin irritation [None]
  - Drug ineffective [None]

NARRATIVE: CASE EVENT DATE: 20140313
